FAERS Safety Report 7278581-2 (Version None)
Quarter: 2011Q1

REPORT INFORMATION
  Report Type: 
  Country: None (occurrence: None)
  Receive Date: 20110207
  Receipt Date: 20110201
  Transmission Date: 20110831
  Serious: Yes (Death)
  Sender: FDA-Public Use
  Company Number: PHHY2011AU08380

PATIENT
  Age: 54 Year
  Sex: Male

DRUGS (5)
  1. CYCLOPHOSPHAMIDE [Suspect]
     Indication: LYMPHOMA
     Dosage: 04 CYCLES
  2. RADIOTHERAPY [Suspect]
     Indication: LYMPHOMA
     Dosage: 04 CYCLES
  3. MITOXANTRONE [Suspect]
     Indication: LYMPHOMA
     Dosage: 04 CYCLES
  4. FLUDARA [Suspect]
     Indication: LYMPHOMA
     Dosage: 04 CYCLES
  5. RITUXIMAB [Suspect]
     Indication: LYMPHOMA
     Dosage: 04 CYCLES

REACTIONS (1)
  - CHRONIC MYELOMONOCYTIC LEUKAEMIA [None]
